FAERS Safety Report 8233563-9 (Version None)
Quarter: 2012Q1

REPORT INFORMATION
  Report Type: 
  Country: None (occurrence: None)
  Receive Date: 20120326
  Receipt Date: 20120314
  Transmission Date: 20120608
  Serious: Yes (Other)
  Sender: FDA-Public Use
  Company Number: IT-JNJFOC-20120208452

PATIENT
  Age: 49 Year
  Sex: Male

DRUGS (2)
  1. REMICADE [Suspect]
     Indication: PSORIATIC ARTHROPATHY
     Dosage: DOSE ALSO REPORTE AS 5 MG/KG
     Route: 042
     Dates: start: 20080131, end: 20110908
  2. REMICADE [Suspect]
     Indication: PSORIASIS
     Dosage: DOSE ALSO REPORTE AS 5 MG/KG
     Route: 042
     Dates: start: 20080131, end: 20110908

REACTIONS (1)
  - B-CELL LYMPHOMA [None]
